APPROVED DRUG PRODUCT: THEOPHYLLINE
Active Ingredient: THEOPHYLLINE
Strength: 125MG
Dosage Form/Route: CAPSULE, EXTENDED RELEASE;ORAL
Application: A088654 | Product #001
Applicant: CENTRAL PHARMACEUTICALS INC
Approved: Feb 12, 1985 | RLD: No | RS: No | Type: DISCN